FAERS Safety Report 23822804 (Version 1)
Quarter: 2024Q2

REPORT INFORMATION
  Report Type: Spontaneous
  Country: RU (occurrence: RU)
  Receive Date: 20240506
  Receipt Date: 20240506
  Transmission Date: 20240716
  Serious: Yes (Other)
  Sender: FDA-Public Use
  Company Number: RU-ABBVIE-5743148

PATIENT
  Sex: Female
  Weight: 67 kg

DRUGS (10)
  1. ADALIMUMAB [Suspect]
     Active Substance: ADALIMUMAB\ISOPROPYL ALCOHOL
     Indication: Rheumatoid arthritis
     Route: 058
     Dates: start: 201103, end: 201202
  2. METHOTREXATE SODIUM [Suspect]
     Active Substance: METHOTREXATE SODIUM
     Indication: Product used for unknown indication
     Route: 058
     Dates: start: 2011, end: 2018
  3. RITUXIMAB [Suspect]
     Active Substance: RITUXIMAB
     Indication: Rheumatoid arthritis
     Dosage: FREQUENCY TEXT: ONCE IN A 6 MONTHS
     Route: 041
     Dates: start: 201203, end: 201810
  4. TOCILIZUMAB [Concomitant]
     Active Substance: TOCILIZUMAB
     Indication: Rheumatoid arthritis
     Route: 042
     Dates: start: 2019, end: 2020
  5. TOCILIZUMAB [Concomitant]
     Active Substance: TOCILIZUMAB
     Indication: Rheumatoid arthritis
     Route: 042
     Dates: start: 2020, end: 2021
  6. OLOKIZUMAB [Concomitant]
     Active Substance: OLOKIZUMAB
     Indication: Rheumatoid arthritis
     Route: 058
     Dates: start: 202201
  7. METHYLPREDNISOLONE [Concomitant]
     Active Substance: METHYLPREDNISOLONE
     Indication: Product used for unknown indication
     Dosage: FREQUENCY TEXT: 3 TIMES IN A ROW
     Dates: start: 2011
  8. METHYLPREDNISOLONE [Concomitant]
     Active Substance: METHYLPREDNISOLONE
     Indication: Product used for unknown indication
     Dosage: FREQUENCY TEXT: 2 TIMES IN A ROW
     Route: 041
     Dates: start: 2012
  9. METHYLPREDNISOLONE [Concomitant]
     Active Substance: METHYLPREDNISOLONE
     Indication: Product used for unknown indication
     Dosage: 4-6 MILLIGRAM PER DAY
     Dates: start: 2019, end: 2019
  10. METHYLPREDNISOLONE [Concomitant]
     Active Substance: METHYLPREDNISOLONE
     Indication: Product used for unknown indication
     Dosage: FREQUENCY TEXT: 2 TIMES
     Dates: start: 2018

REACTIONS (24)
  - Osteonecrosis [Unknown]
  - Drug ineffective [Recovered/Resolved]
  - Headache [Unknown]
  - Joint range of motion decreased [Unknown]
  - Musculoskeletal stiffness [Unknown]
  - Rheumatoid arthritis [Unknown]
  - Secondary amyloidosis [Unknown]
  - Coronavirus infection [Recovered/Resolved]
  - Pneumonia [Recovered/Resolved]
  - Rheumatoid nodule [Unknown]
  - Muscle atrophy [Unknown]
  - Foot deformity [Unknown]
  - Rheumatoid arthritis [Recovered/Resolved]
  - Weight decreased [Unknown]
  - Drug ineffective [Unknown]
  - Drug intolerance [Unknown]
  - Osteoarthritis [Unknown]
  - Degenerative aortic valve disease [Unknown]
  - Pulmonary arterial pressure increased [Unknown]
  - Nephrolithiasis [Unknown]
  - Chronic gastritis [Unknown]
  - Duodenitis [Unknown]
  - Cardiac failure [Unknown]
  - Joint contracture [Unknown]

NARRATIVE: CASE EVENT DATE: 20180101
